FAERS Safety Report 21964166 (Version 1)
Quarter: 2023Q1

REPORT INFORMATION
  Report Type: Spontaneous
  Country: JP (occurrence: JP)
  Receive Date: 20230207
  Receipt Date: 20230207
  Transmission Date: 20230417
  Serious: Yes (Other)
  Sender: FDA-Public Use
  Company Number: JP-OTSUKA-2023_002817

PATIENT
  Age: 5 Decade
  Sex: Female

DRUGS (1)
  1. ABILIFY [Suspect]
     Active Substance: ARIPIPRAZOLE
     Indication: Schizophrenia
     Dosage: 400/SHOT
     Route: 065

REACTIONS (4)
  - Schizophrenia [Unknown]
  - Feeling abnormal [Unknown]
  - Psychotic disorder [Unknown]
  - Drug ineffective [Unknown]
